FAERS Safety Report 4754164-0 (Version None)
Quarter: 2005Q3

REPORT INFORMATION
  Report Type: 
  Country: None (occurrence: None)
  Receive Date: 20050826
  Receipt Date: 20020306
  Transmission Date: 20060218
  Serious: Yes (Other)
  Sender: FDA-Public Use
  Company Number: JP-ABBOTT-05P-087-0306506-00

PATIENT
  Age: 44 Year
  Sex: Female

DRUGS (2)
  1. FERO GRADUMET [Suspect]
     Indication: DRUG USE FOR UNKNOWN INDICATION
     Route: 048
  2. AZULENE SULFONATE SODIUM L-GLUTAMINE [Suspect]
     Indication: DRUG USE FOR UNKNOWN INDICATION
     Route: 048

REACTIONS (11)
  - AUTOIMMUNE DISORDER [None]
  - BLOOD BILIRUBIN INCREASED [None]
  - CONDITION AGGRAVATED [None]
  - DIABETES MELLITUS [None]
  - IRON DEFICIENCY ANAEMIA [None]
  - LABORATORY TEST ABNORMAL [None]
  - LIVER DISORDER [None]
  - RHEUMATOID ARTHRITIS [None]
  - TRANSAMINASES INCREASED [None]
  - UTERINE LEIOMYOMA [None]
  - WEIGHT DECREASED [None]
